FAERS Safety Report 19954047 (Version 2)
Quarter: 2021Q4

REPORT INFORMATION
  Report Type: Report from Study
  Country: US (occurrence: US)
  Receive Date: 20211014
  Receipt Date: 20211116
  Transmission Date: 20220303
  Serious: Yes (Hospitalization, Other)
  Sender: FDA-Public Use
  Company Number: US-NOVARTISPH-NVSC2021US191633

PATIENT
  Age: 77 Year
  Sex: Female
  Weight: 54 kg

DRUGS (16)
  1. KISQALI [Suspect]
     Active Substance: RIBOCICLIB
     Indication: Ovarian cancer
     Dosage: 600 MG, QD (Q DAY) X 21 DAYS
     Route: 048
     Dates: start: 20210625, end: 20210811
  2. FEMARA [Suspect]
     Active Substance: LETROZOLE
     Indication: Ovarian cancer
     Dosage: NO TREATMENT
     Route: 065
  3. FEMARA [Suspect]
     Active Substance: LETROZOLE
     Dosage: 2.5 MG, QD
     Route: 048
     Dates: start: 20211015, end: 20211102
  4. VITAMIN B6 [Concomitant]
     Active Substance: PYRIDOXINE HYDROCHLORIDE
     Indication: Supplementation therapy
     Dosage: 50 MG, BID (TWICE DAILY)
     Route: 048
     Dates: start: 20131101
  5. LORAZEPAM [Concomitant]
     Active Substance: LORAZEPAM
     Indication: Insomnia
     Dosage: 0.5 MG, (AS NEEDED)
     Route: 048
     Dates: start: 20160901
  6. LORAZEPAM [Concomitant]
     Active Substance: LORAZEPAM
     Indication: Nausea
  7. LORAZEPAM [Concomitant]
     Active Substance: LORAZEPAM
     Indication: Vomiting
  8. GABAPENTIN [Concomitant]
     Active Substance: GABAPENTIN
     Indication: Peripheral sensory neuropathy
     Dosage: 300 MG, TID (THREE TIMES DAILY)
     Route: 048
     Dates: start: 20170331
  9. IBUPROFEN [Concomitant]
     Active Substance: IBUPROFEN
     Indication: Back pain
     Dosage: 400 MG (AS NEEDED)
     Route: 048
     Dates: start: 20190119
  10. SUDAFED [Concomitant]
     Active Substance: PSEUDOEPHEDRINE HYDROCHLORIDE
     Indication: Upper-airway cough syndrome
     Dosage: 2 DF (TABLET) AS NEEDED
     Route: 048
     Dates: start: 20190809
  11. CALCIUM CARBONATE [Concomitant]
     Active Substance: CALCIUM CARBONATE
     Indication: Osteoporosis
     Dosage: 2000 MG, QD (ONCE DAILY)
     Route: 048
     Dates: start: 20191201
  12. PROCHLORPERAZINE [Concomitant]
     Active Substance: PROCHLORPERAZINE
     Indication: Nausea
     Dosage: 10 MG (AS NEEDED)
     Route: 048
     Dates: start: 20190625
  13. PROCHLORPERAZINE [Concomitant]
     Active Substance: PROCHLORPERAZINE
     Indication: Vomiting
  14. POTASSIUM CHLORIDE [Concomitant]
     Active Substance: POTASSIUM CHLORIDE
     Indication: Hypokalaemia
     Dosage: 20 MG, BID
     Route: 048
     Dates: start: 20211015
  15. VITAMIN D3 [Concomitant]
     Active Substance: CHOLECALCIFEROL
     Indication: Osteoporosis
     Dosage: 500 IU, QD (ONCE DAILY)
     Route: 048
     Dates: start: 20191201
  16. ALENDRONATE [Concomitant]
     Active Substance: ALENDRONATE SODIUM
     Indication: Osteoporosis
     Dosage: 35 MG, QW (EVERY WEEK)
     Route: 048
     Dates: start: 20210717

REACTIONS (8)
  - Weight decreased [Not Recovered/Not Resolved]
  - Gastritis [Not Recovered/Not Resolved]
  - Neutrophil count decreased [Recovered/Resolved]
  - Abdominal pain upper [Not Recovered/Not Resolved]
  - Nausea [Not Recovered/Not Resolved]
  - Vomiting [Not Recovered/Not Resolved]
  - Small intestinal obstruction [Recovered/Resolved]
  - Ileus [Not Recovered/Not Resolved]

NARRATIVE: CASE EVENT DATE: 20210818
